FAERS Safety Report 18259402 (Version 2)
Quarter: 2020Q3

REPORT INFORMATION
  Report Type: Spontaneous
  Country: US (occurrence: US)
  Receive Date: 20200911
  Receipt Date: 20200928
  Transmission Date: 20201103
  Serious: Yes (Death, Hospitalization, Other)
  Sender: FDA-Public Use
  Company Number: US-JNJFOC-A-NJ2020-208098

PATIENT
  Age: 69 Year
  Sex: Female
  Weight: 77.63 kg

DRUGS (6)
  1. SILDENAFIL CITRATE. [Concomitant]
     Active Substance: SILDENAFIL CITRATE
  2. OFEV [Concomitant]
     Active Substance: NINTEDANIB
  3. BACTRIM [Suspect]
     Active Substance: SULFAMETHOXAZOLE\TRIMETHOPRIM
  4. UPTRAVI [Suspect]
     Active Substance: SELEXIPAG
     Indication: PULMONARY ARTERIAL HYPERTENSION
     Dosage: UNK
     Route: 048
  5. UPTRAVI [Suspect]
     Active Substance: SELEXIPAG
     Route: 048
  6. ATENOLOL. [Suspect]
     Active Substance: ATENOLOL

REACTIONS (8)
  - Death [Fatal]
  - Urinary tract infection [Unknown]
  - Oxygen saturation decreased [Unknown]
  - Product dose omission issue [Unknown]
  - Hypotension [Unknown]
  - Confusional state [Unknown]
  - Mental status changes [Unknown]
  - White blood cell count increased [Unknown]
